FAERS Safety Report 9380644 (Version 1)
Quarter: 2013Q3

REPORT INFORMATION
  Report Type: Spontaneous
  Country: US (occurrence: US)
  Receive Date: 20130702
  Receipt Date: 20130702
  Transmission Date: 20140515
  Serious: No
  Sender: FDA-Public Use
  Company Number: US-009507513-1306USA012989

PATIENT
  Age: 28 Year
  Sex: Female
  Weight: 56.69 kg

DRUGS (1)
  1. NUVARING [Suspect]
     Indication: MENSTRUATION IRREGULAR
     Dosage: 3 WEEK IN 1 WEEK RING FREE BREAK
     Route: 067
     Dates: start: 20130325

REACTIONS (1)
  - Device expulsion [Unknown]
